FAERS Safety Report 10391734 (Version 2)
Quarter: 2014Q4

REPORT INFORMATION
  Report Type: Spontaneous
  Country: US (occurrence: US)
  Receive Date: 20140818
  Receipt Date: 20141008
  Transmission Date: 20150528
  Serious: No
  Sender: FDA-Public Use
  Company Number: US-009507513-1408USA008360

PATIENT
  Age: 22 Year
  Sex: Female
  Weight: 75.74 kg

DRUGS (3)
  1. LIDOCAINE HYDROCHLORIDE. [Concomitant]
     Active Substance: LIDOCAINE HYDROCHLORIDE
     Dosage: LOCAL
  2. NEXPLANON [Suspect]
     Active Substance: ETONOGESTREL
     Indication: CONTRACEPTION
     Dosage: UNK
     Route: 059
     Dates: start: 20140128, end: 20140807
  3. BETADINE [Concomitant]
     Active Substance: POVIDONE-IODINE

REACTIONS (2)
  - Implant site vesicles [Recovered/Resolved]
  - Implant site vesicles [Recovered/Resolved]

NARRATIVE: CASE EVENT DATE: 20140128
